FAERS Safety Report 7472565-7 (Version None)
Quarter: 2011Q2

REPORT INFORMATION
  Report Type: 
  Country: None (occurrence: None)
  Receive Date: 20110511
  Receipt Date: 20110422
  Transmission Date: 20111010
  Serious: No
  Sender: FDA-Public Use
  Company Number: US-B.I. PHARMACEUTICALS,INC./RIDGEFIELD-2011-BP-06924BP

PATIENT
  Sex: Female

DRUGS (8)
  1. DIGOXIN [Concomitant]
  2. LEVOTHYROXINE SODIUM [Concomitant]
  3. LOSARTAN [Concomitant]
  4. KLOR-CON [Concomitant]
  5. SIMVASTATIN [Concomitant]
  6. PRADAXA [Suspect]
     Indication: ANTICOAGULANT THERAPY
  7. METOPROLOL SUCCINATE [Concomitant]
  8. POTASSIUM [Concomitant]

REACTIONS (3)
  - BURNING SENSATION [None]
  - SENSATION OF FOREIGN BODY [None]
  - ABDOMINAL DISCOMFORT [None]
